FAERS Safety Report 6038015-2 (Version None)
Quarter: 2009Q1

REPORT INFORMATION
  Report Type: 
  Country: None (occurrence: None)
  Receive Date: 20090114
  Receipt Date: 20090114
  Transmission Date: 20090719
  Serious: No
  Sender: FDA-Public Use
  Company Number: None

PATIENT
  Sex: Male
  Weight: 50.3493 kg

DRUGS (2)
  1. CITALOPRAM [Suspect]
     Indication: POST-TRAUMATIC STRESS DISORDER
     Dosage: 10 MG QD PO
     Route: 048
     Dates: start: 20081229, end: 20090113
  2. SERTRALINE [Suspect]
     Indication: POST-TRAUMATIC STRESS DISORDER
     Dosage: 50 MG QD PO
     Route: 048
     Dates: start: 20080424, end: 20090105

REACTIONS (2)
  - DIARRHOEA [None]
  - RASH [None]
